FAERS Safety Report 5625898-0 (Version None)
Quarter: 2008Q1

REPORT INFORMATION
  Report Type: 
  Country: None (occurrence: None)
  Receive Date: 20080214
  Receipt Date: 20071220
  Transmission Date: 20080703
  Serious: Yes (Hospitalization, Other)
  Sender: FDA-Public Use
  Company Number: CH-BAYER-200718599GPV

PATIENT
  Age: 84 Year
  Sex: Female

DRUGS (6)
  1. PARACETAMOL [Suspect]
     Indication: MUSCULOSKELETAL PAIN
     Dosage: AS USED: 4 G
     Route: 065
  2. ASPIRIN [Suspect]
     Dosage: TOTAL DAILY DOSE: 100 MG
     Route: 048
  3. ETHANOL [Suspect]
     Indication: DRUG USE FOR UNKNOWN INDICATION
     Dosage: AS USED: 25 G
     Route: 048
  4. OLANZAPINE [Concomitant]
     Indication: SCHIZOPHRENIA
     Dosage: AS USED: 2.5 MG
     Route: 065
  5. ASPIRIN [Concomitant]
     Indication: CORONARY ARTERY DISEASE
     Dosage: AS USED: 100 MG
     Route: 065
  6. METOPROLOL TARTRATE [Concomitant]
     Indication: CORONARY ARTERY DISEASE
     Dosage: AS USED: 50 MG
     Route: 065

REACTIONS (5)
  - ACUTE HEPATIC FAILURE [None]
  - BLOOD BILIRUBIN INCREASED [None]
  - BLOOD CREATININE INCREASED [None]
  - METABOLIC ACIDOSIS [None]
  - TRANSAMINASES INCREASED [None]
